FAERS Safety Report 10427549 (Version 2)
Quarter: 2014Q3

REPORT INFORMATION
  Report Type: Spontaneous
  Country: US (occurrence: US)
  Receive Date: 20140903
  Receipt Date: 20140908
  Transmission Date: 20150326
  Serious: Yes (Other)
  Sender: FDA-Public Use
  Company Number: US-TEVA-506736USA

PATIENT
  Age: 20 Year
  Sex: Female
  Weight: 79 kg

DRUGS (1)
  1. TAKE ACTION [Suspect]
     Active Substance: LEVONORGESTREL
     Indication: POST COITAL CONTRACEPTION
     Dosage: 1.5 MILLIGRAM DAILY;
     Route: 048
     Dates: start: 20140901, end: 20140901

REACTIONS (7)
  - Haemorrhoids [Unknown]
  - Constipation [Not Recovered/Not Resolved]
  - Anal inflammation [Unknown]
  - Abdominal pain upper [Not Recovered/Not Resolved]
  - Haematochezia [Unknown]
  - Nausea [Not Recovered/Not Resolved]
  - Pelvic pain [Not Recovered/Not Resolved]

NARRATIVE: CASE EVENT DATE: 20140902
